FAERS Safety Report 4783096-7 (Version None)
Quarter: 2005Q3

REPORT INFORMATION
  Report Type: 
  Country: None (occurrence: None)
  Receive Date: 20050929
  Receipt Date: 20050926
  Transmission Date: 20060218
  Serious: Yes (Hospitalization)
  Sender: FDA-Public Use
  Company Number: 200513161FR

PATIENT
  Age: 36 Year
  Sex: Male

DRUGS (10)
  1. FLAGYL [Suspect]
     Indication: INFECTION
     Route: 042
     Dates: start: 20050625, end: 20050629
  2. FLAGYL [Suspect]
     Indication: PROCTITIS
     Route: 042
     Dates: start: 20050625, end: 20050629
  3. TARGOCID [Suspect]
     Indication: INFECTION
     Route: 042
     Dates: start: 20050628, end: 20050629
  4. TARGOCID [Suspect]
     Indication: PROCTITIS
     Route: 042
     Dates: start: 20050628, end: 20050629
  5. AMIKLIN [Suspect]
     Indication: INFECTION
     Route: 042
     Dates: start: 20050624, end: 20050629
  6. AMIKLIN [Suspect]
     Indication: PROCTITIS
     Route: 042
     Dates: start: 20050624, end: 20050629
  7. AXEPIM [Suspect]
     Indication: INFECTION
     Route: 042
     Dates: start: 20050627, end: 20050628
  8. AXEPIM [Suspect]
     Indication: PROCTITIS
     Route: 042
     Dates: start: 20050627, end: 20050628
  9. TAZOCILLINE [Suspect]
     Indication: INFECTION
     Route: 042
     Dates: start: 20050624, end: 20050627
  10. TAZOCILLINE [Suspect]
     Indication: PROCTITIS
     Route: 042
     Dates: start: 20050624, end: 20050627

REACTIONS (1)
  - DERMATITIS EXFOLIATIVE [None]
